FAERS Safety Report 7281902-8 (Version None)
Quarter: 2011Q1

REPORT INFORMATION
  Report Type: 
  Country: None (occurrence: None)
  Receive Date: 20110128
  Receipt Date: 20110113
  Transmission Date: 20110831
  Serious: Yes (Other)
  Sender: FDA-Public Use
  Company Number: AUR-APL-2011-00182

PATIENT
  Age: 87 Year
  Sex: Female
  Weight: 64.8644 kg

DRUGS (7)
  1. SIMVASTATIN (AUROBINDO) [Suspect]
     Indication: BLOOD CHOLESTEROL INCREASED
     Dosage: 10MG-1/2 TO  1TAB QD-PO
     Route: 048
     Dates: start: 20100810
  2. LOTREL 10/40MG [Concomitant]
  3. ARICEPT [Concomitant]
  4. ASPIRIN [Concomitant]
  5. VITAMIN D [Concomitant]
  6. SYNTHROID 0.88MG [Concomitant]
  7. CALCIUM [Concomitant]

REACTIONS (4)
  - HAEMOGLOBIN DECREASED [None]
  - BACK PAIN [None]
  - ARTHRALGIA [None]
  - RECTAL HAEMORRHAGE [None]
